FAERS Safety Report 12983736 (Version 1)
Quarter: 2016Q4

REPORT INFORMATION
  Report Type: Spontaneous
  Country: FR (occurrence: FR)
  Receive Date: 20161129
  Receipt Date: 20161129
  Transmission Date: 20170207
  Serious: Yes (Hospitalization)
  Sender: FDA-Public Use
  Company Number: FR-ROCHE-1855824

PATIENT
  Age: 41 Year
  Sex: Male

DRUGS (11)
  1. COTELLIC [Suspect]
     Active Substance: COBIMETINIB
     Route: 048
     Dates: start: 20160616
  2. LEXOMIL [Concomitant]
     Active Substance: BROMAZEPAM
     Route: 065
  3. KEPPRA [Concomitant]
     Active Substance: LEVETIRACETAM
     Route: 065
  4. NORSET [Concomitant]
     Active Substance: MIRTAZAPINE
     Route: 065
  5. INEXIUM [Concomitant]
     Active Substance: ESOMEPRAZOLE
  6. DOLIPRANE [Concomitant]
     Active Substance: ACETAMINOPHEN
  7. COTELLIC [Suspect]
     Active Substance: COBIMETINIB
     Indication: MALIGNANT MELANOMA
     Dosage: CYCLE 1 DAY 1
     Route: 048
     Dates: start: 20160524, end: 20160604
  8. DUROGESIC [Concomitant]
     Active Substance: FENTANYL
  9. DIFFU K [Concomitant]
     Active Substance: POTASSIUM CHLORIDE
     Route: 065
  10. ZELBORAF [Suspect]
     Active Substance: VEMURAFENIB
     Dosage: 3 TABLETS IN MORNING AND IN EVENING
     Route: 048
     Dates: start: 20160616
  11. ZELBORAF [Suspect]
     Active Substance: VEMURAFENIB
     Indication: MALIGNANT MELANOMA
     Dosage: CYCLE 1 DAY 1
     Route: 048
     Dates: start: 20160524, end: 20160604

REACTIONS (4)
  - Rash maculo-papular [Recovered/Resolved]
  - Pyrexia [Recovered/Resolved]
  - Face oedema [Recovered/Resolved]
  - Purpura [Recovered/Resolved]
